FAERS Safety Report 20746024 (Version 2)
Quarter: 2022Q3

REPORT INFORMATION
  Report Type: Report from Study
  Country: US (occurrence: US)
  Receive Date: 20220425
  Receipt Date: 20220722
  Transmission Date: 20221027
  Serious: No
  Sender: FDA-Public Use
  Company Number: US-MIRM-000280

PATIENT
  Sex: Female

DRUGS (1)
  1. LIVMARLI [Suspect]
     Active Substance: MARALIXIBAT CHLORIDE
     Indication: Product used for unknown indication
     Dosage: 24JAN2022: LOT #: 1847502/EXPIRY: 31MAY2023?18MAR2022: LOT #: 18474971/EXPIRY: 30NOV2022
     Route: 048

REACTIONS (2)
  - Pruritus [Unknown]
  - Sleep disorder [Unknown]
